FAERS Safety Report 11044707 (Version 4)
Quarter: 2015Q2

REPORT INFORMATION
  Report Type: Report from Study
  Country: KR (occurrence: KR)
  Receive Date: 20150417
  Receipt Date: 20150618
  Transmission Date: 20150821
  Serious: Yes (Hospitalization)
  Sender: FDA-Public Use
  Company Number: KR-BAYER-2015-121425

PATIENT
  Age: 53 Year
  Sex: Male

DRUGS (2)
  1. NEXAVAR [Suspect]
     Active Substance: SORAFENIB
     Indication: HEPATOCELLULAR CARCINOMA
     Dosage: 400 MG, QD
     Route: 048
     Dates: start: 20150405
  2. NEXAVAR [Suspect]
     Active Substance: SORAFENIB
     Indication: HEPATOCELLULAR CARCINOMA
     Dosage: 400 MG, BID
     Route: 048
     Dates: start: 20150326, end: 20150404

REACTIONS (11)
  - Drug dose omission [None]
  - Lip pain [None]
  - Alopecia [None]
  - Flatulence [None]
  - Pain in extremity [None]
  - Diarrhoea [None]
  - Vomiting [None]
  - Infrequent bowel movements [None]
  - Oral pain [None]
  - Blister [Not Recovered/Not Resolved]
  - Feeding disorder [None]

NARRATIVE: CASE EVENT DATE: 2015
